FAERS Safety Report 9394731 (Version 1)
Quarter: 2013Q3

REPORT INFORMATION
  Report Type: Spontaneous
  Country: FR (occurrence: None)
  Receive Date: 20130705
  Receipt Date: 20130705
  Transmission Date: 20140515
  Serious: Yes (Other)
  Sender: FDA-Public Use
  Company Number: 2013192212

PATIENT
  Age: 6 Year
  Sex: Male

DRUGS (2)
  1. FRAGMINE (DALTEPARIN SODIUM) SOLUTION FOR INJECTION [Suspect]
     Route: 058
     Dates: start: 20130515, end: 20130515
  2. ACETYLSALICYLIC ACID (ACETYLSALICYLIC ACID) [Suspect]
     Route: 048
     Dates: start: 20120229, end: 20130515

REACTIONS (2)
  - Urticaria [None]
  - Lip oedema [None]
